FAERS Safety Report 10996571 (Version 1)
Quarter: 2015Q1

REPORT INFORMATION
  Report Type: Spontaneous
  Country: US (occurrence: None)
  Receive Date: 20150331
  Receipt Date: 20150331
  Transmission Date: 20150721
  Serious: Yes (Hospitalization, Other)
  Sender: FDA-Public Use
  Company Number: PHEH2014US024370

PATIENT
  Age: 57 Year
  Sex: Female

DRUGS (4)
  1. MULTI VIT (ASCORBIC ACID, CHROMIUM COPPER, FOLIC ACID, INOSTOL, MAGNESIUM, MANGANESE, NICOTINAMIDE, PANTOTHENIC ACID, POTASSIUM, PYRIDOXINE HYDROCHLORIDE, RETINOL, RIBOFLAVIN, SELENIUM, VITAMIN B1 NOS, VITAMIN B12 NOS, VITAMIN E NOX) [Concomitant]
  2. XGEVA [Concomitant]
     Active Substance: DENOSUMAB
  3. EXEMASTANE [Concomitant]
     Active Substance: EXEMESTANE
  4. AFINITOR [Suspect]
     Active Substance: EVEROLIMUS
     Indication: PRODUCT USED FOR UNKNOWN INDICATION
     Dates: start: 201405

REACTIONS (5)
  - Pneumonia [None]
  - Cough [None]
  - Oral pain [None]
  - Fatigue [None]
  - Herpes zoster [None]
